FAERS Safety Report 9431870 (Version 1)
Quarter: 2013Q3

REPORT INFORMATION
  Report Type: Spontaneous
  Country: CA (occurrence: CA)
  Receive Date: 20130731
  Receipt Date: 20130731
  Transmission Date: 20140515
  Serious: Yes (Other)
  Sender: FDA-Public Use
  Company Number: PHHY2012CA012228

PATIENT
  Age: 78 Year
  Sex: Female

DRUGS (7)
  1. TASIGNA [Suspect]
     Indication: CHRONIC MYELOID LEUKAEMIA
     Dosage: 400 MG, BID
     Route: 048
     Dates: start: 20070615, end: 20120727
  2. AMLODIPINE [Concomitant]
     Dosage: 5 MG, QD
  3. METOPROLOL [Concomitant]
     Dosage: 25 MG
  4. ATORVASTATIN [Concomitant]
     Dosage: 40 MG, QD
  5. PANTOLOC//PANTOPRAZOLE SODIUM SESQUIHYDRATE [Concomitant]
     Dosage: 40 MG, QD
  6. ASAPHEN [Concomitant]
     Dosage: 80 MG, QD
  7. BRILINTA [Concomitant]

REACTIONS (3)
  - Peripheral arterial occlusive disease [Recovering/Resolving]
  - Skin ulcer [Recovering/Resolving]
  - Myocardial infarction [Unknown]
